FAERS Safety Report 23692081 (Version 2)
Quarter: 2024Q2

REPORT INFORMATION
  Report Type: Spontaneous
  Country: FR (occurrence: FR)
  Receive Date: 20240401
  Receipt Date: 20240510
  Transmission Date: 20240715
  Serious: Yes (Hospitalization, Other)
  Sender: FDA-Public Use
  Company Number: FR-009507513-2403FRA004232

PATIENT
  Age: 61 Year
  Sex: Female
  Weight: 54 kg

DRUGS (6)
  1. PACLITAXEL [Suspect]
     Active Substance: PACLITAXEL
     Indication: Triple negative breast cancer
     Dosage: 80 MILLIGRAM/SQ. METER
     Route: 042
     Dates: start: 20220627, end: 20220914
  2. PACLITAXEL [Suspect]
     Active Substance: PACLITAXEL
     Indication: Breast cancer
  3. CARBOPLATIN [Suspect]
     Active Substance: CARBOPLATIN
     Indication: Triple negative breast cancer
     Dosage: NR
     Route: 042
     Dates: start: 20220627, end: 20220914
  4. CARBOPLATIN [Suspect]
     Active Substance: CARBOPLATIN
     Indication: Breast cancer
  5. KEYTRUDA [Suspect]
     Active Substance: PEMBROLIZUMAB
     Indication: Triple negative breast cancer
     Dosage: 200 MILLIGRAM, Q3W (200 MILLIGRAM, Q3W, 4 INJECTIONS AS NEOADJUVANT TREATMENT)
     Route: 042
     Dates: start: 20220627, end: 20230315
  6. KEYTRUDA [Suspect]
     Active Substance: PEMBROLIZUMAB
     Indication: Breast cancer
     Dosage: 200 MILLIGRAM, Q3W (200 MILLIGRAM, Q3W, 5 INJECTIONS AS ADJUVANT TREATMENT)
     Route: 042

REACTIONS (2)
  - Rectosigmoid cancer [Unknown]
  - Colonic abscess [Recovered/Resolved]

NARRATIVE: CASE EVENT DATE: 20220914
